FAERS Safety Report 10044652 (Version 1)
Quarter: 2014Q1

REPORT INFORMATION
  Report Type: Spontaneous
  Country: US (occurrence: US)
  Receive Date: 20140328
  Receipt Date: 20140328
  Transmission Date: 20141002
  Serious: No
  Sender: FDA-Public Use
  Company Number: US-B.I. PHARMACEUTICALS,INC./RIDGEFIELD-2014-BI-12851PF

PATIENT
  Sex: Female

DRUGS (11)
  1. SPIRIVA [Suspect]
     Indication: PRODUCT USED FOR UNKNOWN INDICATION
     Route: 065
  2. XALATAN [Suspect]
     Indication: PRODUCT USED FOR UNKNOWN INDICATION
     Dosage: DOSE PER APPLICATION: 0.005 PERCENT, 1DROP EACH EYE AT BEDTIME
     Route: 065
  3. PULMICORT [Concomitant]
     Route: 065
  4. FLEX [Concomitant]
     Route: 065
  5. FLONASE [Concomitant]
     Route: 065
  6. LANTUS [Concomitant]
     Route: 065
  7. FUROSEMIDE [Concomitant]
     Route: 065
  8. IMDUR [Concomitant]
     Route: 065
  9. COUMADIN [Concomitant]
     Route: 065
  10. DIGOXIN [Concomitant]
     Route: 065
  11. PLAVIX [Concomitant]
     Route: 065

REACTIONS (1)
  - Drug hypersensitivity [Unknown]
